FAERS Safety Report 13932297 (Version 1)
Quarter: 2017Q3

REPORT INFORMATION
  Report Type: Spontaneous
  Country: US (occurrence: US)
  Receive Date: 20170904
  Receipt Date: 20170904
  Transmission Date: 20171127
  Serious: No
  Sender: FDA-Public Use
  Company Number: US-009507513-1708USA007430

PATIENT
  Age: 31 Year
  Sex: Female
  Weight: 74.83 kg

DRUGS (1)
  1. NEXPLANON [Suspect]
     Active Substance: ETONOGESTREL
     Indication: CONTRACEPTION
     Dosage: UNK, EVERY 3 YEARS; LEFT ARM
     Route: 059
     Dates: start: 20160420

REACTIONS (7)
  - Muscle spasms [Unknown]
  - Chest pain [Unknown]
  - Swelling [Unknown]
  - Dysphagia [Unknown]
  - Hypoaesthesia [Unknown]
  - Pain [Unknown]
  - Cyanosis [Unknown]

NARRATIVE: CASE EVENT DATE: 201708
